FAERS Safety Report 21799780 (Version 1)
Quarter: 2022Q4

REPORT INFORMATION
  Report Type: Spontaneous
  Country: AU (occurrence: None)
  Receive Date: 20221229
  Receipt Date: 20221229
  Transmission Date: 20230112
  Serious: Yes (Life-Threatening, Hospitalization, Disabling)
  Sender: FDA-Public Use
  Company Number: None

PATIENT
  Age: 80 Year
  Sex: Male
  Weight: 73 kg

DRUGS (4)
  1. NEURONTIN [Suspect]
     Active Substance: GABAPENTIN
     Indication: Product used for unknown indication
     Dates: start: 20200112, end: 20210103
  2. XARELTO [Concomitant]
     Active Substance: RIVAROXABAN
  3. BISPRO [Concomitant]
  4. PANADOL [Concomitant]
     Active Substance: ACETAMINOPHEN

REACTIONS (10)
  - Blindness [None]
  - Epilepsy [None]
  - Aortic valve replacement [None]
  - Rash pruritic [None]
  - Dysuria [None]
  - Faeces discoloured [None]
  - Diplopia [None]
  - Nightmare [None]
  - Gait disturbance [None]
  - Folliculitis [None]

NARRATIVE: CASE EVENT DATE: 20201201
